FAERS Safety Report 5808742-8 (Version None)
Quarter: 2008Q3

REPORT INFORMATION
  Report Type: 
  Country: None (occurrence: None)
  Receive Date: 20080714
  Receipt Date: 20080703
  Transmission Date: 20090109
  Serious: Yes (Other)
  Sender: FDA-Public Use
  Company Number: JP-JNJFOC-20080600584

PATIENT
  Sex: Male
  Weight: 72 kg

DRUGS (9)
  1. REMICADE [Suspect]
     Route: 042
  2. REMICADE [Suspect]
     Indication: RHEUMATOID ARTHRITIS
     Dosage: 5 INFUSIONS
     Route: 042
  3. CHLORTRIMETRON [Concomitant]
     Indication: PROPHYLAXIS
     Route: 065
  4. PREDNISOLONE [Concomitant]
     Indication: RHEUMATOID ARTHRITIS
     Route: 048
  5. TAKEPRON [Concomitant]
     Indication: RHEUMATOID ARTHRITIS
     Route: 048
  6. AZULFIDINE EN-TABS [Concomitant]
     Indication: RHEUMATOID ARTHRITIS
     Route: 048
  7. RHEUMATREX [Concomitant]
     Indication: RHEUMATOID ARTHRITIS
     Route: 048
  8. BONALON [Concomitant]
     Indication: RHEUMATOID ARTHRITIS
     Route: 048
  9. FOLIAMIN [Concomitant]
     Indication: RHEUMATOID ARTHRITIS
     Route: 048

REACTIONS (6)
  - ARTHRALGIA [None]
  - CHILLS [None]
  - HYPOTENSION [None]
  - INFUSION RELATED REACTION [None]
  - PYREXIA [None]
  - TREMOR [None]
